FAERS Safety Report 8287153-2 (Version None)
Quarter: 2012Q2

REPORT INFORMATION
  Report Type: 
  Country: None (occurrence: None)
  Receive Date: 20120416
  Receipt Date: 20120405
  Transmission Date: 20120825
  Serious: No
  Sender: FDA-Public Use
  Company Number: US-PFIZER INC-2012087159

PATIENT
  Sex: Male
  Weight: 87.075 kg

DRUGS (3)
  1. FLECTOR [Suspect]
     Indication: PAIN
  2. FLECTOR [Suspect]
     Indication: BACK PAIN
     Dosage: UNK
     Dates: start: 20120314, end: 20120403
  3. FLECTOR [Suspect]
     Indication: SWELLING

REACTIONS (3)
  - BLISTER [None]
  - BURNING SENSATION [None]
  - APPLICATION SITE EROSION [None]
